FAERS Safety Report 7074263-0 (Version None)
Quarter: 2010Q4

REPORT INFORMATION
  Report Type: 
  Country: None (occurrence: None)
  Receive Date: 20101029
  Receipt Date: 20101021
  Transmission Date: 20110411
  Serious: Yes (Other)
  Sender: FDA-Public Use
  Company Number: US-US-EMD SERONO, INC.-7005461

PATIENT
  Sex: Male

DRUGS (3)
  1. REBIF [Suspect]
     Indication: MULTIPLE SCLEROSIS
     Route: 058
     Dates: start: 20091210, end: 20100801
  2. MOTRIN [Concomitant]
     Indication: PREMEDICATION
  3. BACLOFEN [Concomitant]

REACTIONS (5)
  - CARDIAC DISORDER [None]
  - FATIGUE [None]
  - INJECTION SITE ERYTHEMA [None]
  - INTRACRANIAL ANEURYSM [None]
  - MULTIPLE SCLEROSIS RELAPSE [None]
